FAERS Safety Report 21958722 (Version 1)
Quarter: 2023Q1

REPORT INFORMATION
  Report Type: Spontaneous
  Country: US (occurrence: None)
  Receive Date: 20230203
  Receipt Date: 20230203
  Transmission Date: 20230417
  Serious: No
  Sender: FDA-Public Use
  Company Number: None

PATIENT
  Age: 67 Year
  Sex: Female

DRUGS (2)
  1. HUMIRA [Suspect]
     Active Substance: ADALIMUMAB
     Dosage: OTHER FREQUENCY : UNKNOWN;?
     Route: 058
     Dates: start: 202007
  2. ELIQUIS [Suspect]
     Active Substance: APIXABAN

REACTIONS (2)
  - Haematemesis [None]
  - Therapy interrupted [None]

NARRATIVE: CASE EVENT DATE: 20230118
